FAERS Safety Report 16681455 (Version 1)
Quarter: 2019Q3

REPORT INFORMATION
  Report Type: Not Available
  Country: None (occurrence: CN)
  Receive Date: 20190808
  Receipt Date: 20190808
  Transmission Date: 20191004
  Serious: Yes (Disabling)
  Sender: FDA-Public Use
  Company Number: CN-JIANGSU HENGRUI MEDICINE CO., LTD.-2072901

PATIENT
  Age: 69 Year
  Sex: Male
  Weight: 70 kg

DRUGS (2)
  1. TEGAFUR GIMERACIL AND OTERACIL POTASSIUM CAPSULES [Concomitant]
     Route: 048
     Dates: start: 20190625, end: 20190625
  2. OXALIPLATIN INJECTION USP, 5 MG/ML, PACKAGED IN 50 MG/10 ML AND 100 MG [Suspect]
     Active Substance: OXALIPLATIN
     Route: 041
     Dates: start: 20190625, end: 20190625

REACTIONS (1)
  - Upper gastrointestinal haemorrhage [Recovering/Resolving]

NARRATIVE: CASE EVENT DATE: 20190628
